FAERS Safety Report 6535042-3 (Version None)
Quarter: 2010Q1

REPORT INFORMATION
  Report Type: 
  Country: None (occurrence: None)
  Receive Date: 20100111
  Receipt Date: 20100111
  Transmission Date: 20100710
  Serious: Yes (Disabling)
  Sender: FDA-Public Use
  Company Number: None

PATIENT
  Sex: Male
  Weight: 77.1115 kg

DRUGS (1)
  1. OMNICEF [Suspect]
     Dosage: 1 TABLET 2X/DAY PO
     Route: 048

REACTIONS (3)
  - BACTERIAL TEST POSITIVE [None]
  - DIARRHOEA [None]
  - VOMITING [None]
